FAERS Safety Report 11239626 (Version 1)
Quarter: 2015Q3

REPORT INFORMATION
  Report Type: Spontaneous
  Country: US (occurrence: None)
  Receive Date: 20150701
  Receipt Date: 20150701
  Transmission Date: 20151125
  Serious: Yes (Life-Threatening, Hospitalization, Other)
  Sender: FDA-Public Use
  Company Number: None

PATIENT
  Age: 62 Year
  Sex: Female
  Weight: 63.5 kg

DRUGS (13)
  1. SERTRALINE [Concomitant]
     Active Substance: SERTRALINE HYDROCHLORIDE
  2. WARFARIN [Concomitant]
     Active Substance: WARFARIN
  3. XARELTO [Suspect]
     Active Substance: RIVAROXABAN
     Indication: THROMBOSIS
     Dosage: 1   ONCE DAILY  TAKEN BY MOUTH
     Route: 048
     Dates: start: 20150319, end: 20150617
  4. BISOPROLOL-HCL [Concomitant]
  5. FLUTICASONE [Concomitant]
     Active Substance: FLUTICASONE\FLUTICASONE PROPIONATE
  6. ONDANSETRON [Concomitant]
     Active Substance: ONDANSETRON
  7. AMIDRONE [Concomitant]
  8. CALCOUM WITH D [Concomitant]
  9. CLONAZAPAM [Concomitant]
  10. VIT B [Concomitant]
     Active Substance: VITAMINS
  11. LEVOTHYROXINE. [Concomitant]
     Active Substance: LEVOTHYROXINE
  12. PEPSID [Concomitant]
  13. ZOLPIDEM [Concomitant]
     Active Substance: ZOLPIDEM\ZOLPIDEM TARTRATE

REACTIONS (4)
  - Cardiac failure congestive [None]
  - Dyspnoea [None]
  - Malaise [None]
  - Pain [None]

NARRATIVE: CASE EVENT DATE: 20150617
